FAERS Safety Report 17704528 (Version 2)
Quarter: 2020Q2

REPORT INFORMATION
  Report Type: Spontaneous
  Country: US (occurrence: US)
  Receive Date: 20200424
  Receipt Date: 20200429
  Transmission Date: 20200714
  Serious: No
  Sender: FDA-Public Use
  Company Number: US-JNJFOC-20200428736

PATIENT
  Sex: Male
  Weight: 86.26 kg

DRUGS (5)
  1. CARVEDILOL. [Concomitant]
     Active Substance: CARVEDILOL
     Route: 048
  2. STELARA [Suspect]
     Active Substance: USTEKINUMAB
     Indication: PRODUCT USED FOR UNKNOWN INDICATION
     Route: 030
     Dates: start: 2018
  3. WARFARIN [Concomitant]
     Active Substance: WARFARIN
     Route: 048
  4. ASPRIN [Concomitant]
     Active Substance: ASPIRIN
     Route: 048
  5. STELARA [Suspect]
     Active Substance: USTEKINUMAB

REACTIONS (6)
  - Therapeutic response decreased [Unknown]
  - Incorrect route of product administration [Unknown]
  - Injection site reaction [Unknown]
  - Off label use [Unknown]
  - Wrong technique in product usage process [Unknown]
  - Underdose [Unknown]
